FAERS Safety Report 4374509-3 (Version None)
Quarter: 2004Q2

REPORT INFORMATION
  Report Type: 
  Country: None (occurrence: None)
  Receive Date: 20040602
  Receipt Date: 20040218
  Transmission Date: 20050107
  Serious: No
  Sender: FDA-Public Use
  Company Number: 200413350BWH

PATIENT
  Age: 34 Year
  Sex: Male
  Weight: 77.1115 kg

DRUGS (2)
  1. LEVITRA [Suspect]
     Dosage: 10 MG, TOTAL DAILY; ORAL (SEE IMAGE)
     Route: 048
     Dates: start: 20030801
  2. CIALIS [Concomitant]

REACTIONS (1)
  - ERECTILE DYSFUNCTION [None]
